FAERS Safety Report 8791024 (Version 2)
Quarter: 2012Q4

REPORT INFORMATION
  Report Type: Spontaneous
  Country: US (occurrence: None)
  Receive Date: 20120907
  Receipt Date: 20120907
  Transmission Date: 20130627
  Serious: Yes (Hospitalization, Other)
  Sender: FDA-Public Use
  Company Number: MLL-2012-00008

PATIENT
  Age: 86 Year
  Sex: Female

DRUGS (2)
  1. FERROUS SULPHATE [Suspect]
     Indication: DRUG USE FOR UNKNOWN INDICATION
  2. LISINOPRIL [Suspect]
     Indication: DRUG USE FOR UNKNOWN INDICATION

REACTIONS (2)
  - Gastrooesophageal reflux disease [None]
  - Drooling [None]
